FAERS Safety Report 14613198 (Version 1)
Quarter: 2018Q1

REPORT INFORMATION
  Report Type: Spontaneous
  Country: GB (occurrence: GB)
  Receive Date: 20180308
  Receipt Date: 20180308
  Transmission Date: 20180509
  Serious: Yes (Other)
  Sender: FDA-Public Use
  Company Number: GB-JNJFOC-20171231310

PATIENT
  Sex: Male

DRUGS (1)
  1. STELARA [Suspect]
     Active Substance: USTEKINUMAB
     Indication: PSORIASIS
     Route: 058
     Dates: start: 201708

REACTIONS (4)
  - Cellulitis [Unknown]
  - Psoriasis [Unknown]
  - Drug ineffective [Unknown]
  - Fluid retention [Unknown]

NARRATIVE: CASE EVENT DATE: 2018
